FAERS Safety Report 5309716-6 (Version None)
Quarter: 2007Q2

REPORT INFORMATION
  Report Type: 
  Country: None (occurrence: None)
  Receive Date: 20070427
  Receipt Date: 20060817
  Transmission Date: 20071010
  Serious: No
  Sender: FDA-Public Use
  Company Number: US-GLAXOSMITHKLINE-A0617183A

PATIENT
  Age: 29 Year
  Sex: Female

DRUGS (1)
  1. ZOFRAN [Suspect]
     Route: 030

REACTIONS (3)
  - DYSTONIA [None]
  - INCORRECT ROUTE OF DRUG ADMINISTRATION [None]
  - TETANY [None]
